FAERS Safety Report 7470819-1 (Version None)
Quarter: 2011Q2

REPORT INFORMATION
  Report Type: 
  Country: None (occurrence: None)
  Receive Date: 20110510
  Receipt Date: 20110505
  Transmission Date: 20111010
  Serious: Yes (Other)
  Sender: FDA-Public Use
  Company Number: US-PFIZER INC-2011097547

PATIENT
  Sex: Female
  Weight: 78 kg

DRUGS (3)
  1. MERCAPTOPURINE [Concomitant]
     Indication: IMMUNOSUPPRESSANT DRUG THERAPY
     Dosage: 75 MG, 1X/DAY
     Dates: start: 19941006
  2. LYRICA [Suspect]
     Indication: FIBROMYALGIA
     Dosage: 75 MG, 3X/DAY
     Route: 048
  3. LAMICTAL [Concomitant]
     Indication: BIPOLAR DISORDER
     Dosage: 200 MG, 1X/DAY
     Dates: start: 20050101

REACTIONS (3)
  - CONVULSION [None]
  - MIGRAINE [None]
  - LOSS OF CONSCIOUSNESS [None]
